FAERS Safety Report 8433413-1 (Version None)
Quarter: 2012Q2

REPORT INFORMATION
  Report Type: 
  Country: None (occurrence: None)
  Receive Date: 20120323
  Receipt Date: 20110728
  Transmission Date: 20120825
  Serious: Yes (Disabling, Other)
  Sender: FDA-Public Use
  Company Number: 163-21880-11070844

PATIENT
  Age: 48 Year
  Sex: Male

DRUGS (5)
  1. REVLIMID [Suspect]
     Indication: MULTIPLE MYELOMA
     Dosage: 25 MG, 1 IN 1 D, PO   15 MG, DAILY X 14 DAYS,  PO   25 MG, DAILY X 21 DAYS, PO   20 MG, DAILY X 21 P
     Route: 048
     Dates: start: 20110101
  2. REVLIMID [Suspect]
     Indication: MULTIPLE MYELOMA
     Dosage: 25 MG, 1 IN 1 D, PO   15 MG, DAILY X 14 DAYS,  PO   25 MG, DAILY X 21 DAYS, PO   20 MG, DAILY X 21 P
     Route: 048
     Dates: start: 20110101, end: 20110301
  3. REVLIMID [Suspect]
     Indication: MULTIPLE MYELOMA
     Dosage: 25 MG, 1 IN 1 D, PO   15 MG, DAILY X 14 DAYS,  PO   25 MG, DAILY X 21 DAYS, PO   20 MG, DAILY X 21 P
     Route: 048
     Dates: start: 20110301, end: 20110101
  4. REVLIMID [Suspect]
     Indication: MULTIPLE MYELOMA
     Dosage: 25 MG, 1 IN 1 D, PO   15 MG, DAILY X 14 DAYS,  PO   25 MG, DAILY X 21 DAYS, PO   20 MG, DAILY X 21 P
     Route: 048
     Dates: start: 20110701
  5. RITUXAN (RITUXIMAB) (UNKNOWN) [Concomitant]

REACTIONS (1)
  - MYELOMA RECURRENCE [None]
